FAERS Safety Report 5696197-6 (Version None)
Quarter: 2008Q2

REPORT INFORMATION
  Report Type: 
  Country: None (occurrence: None)
  Receive Date: 20080403
  Receipt Date: 20080403
  Transmission Date: 20081010
  Serious: Yes (Hospitalization)
  Sender: FDA-Public Use
  Company Number: None

PATIENT
  Age: 38 Year
  Sex: Male
  Weight: 88.4514 kg

DRUGS (1)
  1. BENICAR [Suspect]
     Indication: HYPERTENSION
     Dosage: 20 MG 1 PER DAY PO
     Route: 048
     Dates: start: 20060617, end: 20080327

REACTIONS (9)
  - DIARRHOEA [None]
  - DIZZINESS [None]
  - DYSPNOEA [None]
  - DYSSTASIA [None]
  - HYPERHIDROSIS [None]
  - HYPOAESTHESIA [None]
  - MUSCLE RIGIDITY [None]
  - PARAESTHESIA [None]
  - VOMITING [None]
